FAERS Safety Report 6315021-1 (Version None)
Quarter: 2009Q3

REPORT INFORMATION
  Report Type: 
  Country: None (occurrence: None)
  Receive Date: 20090818
  Receipt Date: 20090818
  Transmission Date: 20100115
  Serious: No
  Sender: FDA-Public Use
  Company Number: None

PATIENT
  Age: 57 Year
  Sex: Female
  Weight: 66.2252 kg

DRUGS (1)
  1. MELOXICAM [Suspect]
     Indication: INFLAMMATION
     Dosage: ONE A DAY ONCE
     Dates: start: 20090816, end: 20090816

REACTIONS (12)
  - COLD SWEAT [None]
  - DIZZINESS [None]
  - EYE SWELLING [None]
  - FEELING HOT [None]
  - NECK PAIN [None]
  - NONSPECIFIC REACTION [None]
  - OEDEMA MOUTH [None]
  - ORAL HERPES [None]
  - PRURITUS [None]
  - SWELLING [None]
  - SWELLING FACE [None]
  - URTICARIA [None]
